FAERS Safety Report 8610974-0 (Version None)
Quarter: 2012Q3

REPORT INFORMATION
  Report Type: 
  Country: None (occurrence: None)
  Receive Date: 20120420
  Receipt Date: 20110621
  Transmission Date: 20120928
  Serious: Yes (Disabling)
  Sender: FDA-Public Use
  Company Number: WAES 1106USA03137

PATIENT
  Age: 10 Year
  Sex: Female
  Weight: 34.927 kg

DRUGS (3)
  1. SINGULAIR [Suspect]
     Indication: ASTHMA
     Dosage: 5 MG/DAILY/PO
     Route: 048
     Dates: start: 20110210, end: 20110501
  2. DULERA [Concomitant]
  3. XOLAIR [Concomitant]

REACTIONS (2)
  - DEPRESSION [None]
  - CATATONIA [None]
